FAERS Safety Report 10382389 (Version 2)
Quarter: 2014Q3

REPORT INFORMATION
  Report Type: Report from Study
  Country: US (occurrence: US)
  Receive Date: 20140813
  Receipt Date: 20140813
  Transmission Date: 20150326
  Serious: Yes (Other)
  Sender: FDA-Public Use
  Company Number: US-SA-2014SA023753

PATIENT
  Age: 41 Year
  Sex: Male

DRUGS (1)
  1. AUBAGIO [Suspect]
     Active Substance: TERIFLUNOMIDE
     Indication: MULTIPLE SCLEROSIS
     Route: 048
     Dates: start: 20140208

REACTIONS (8)
  - Diarrhoea [Recovered/Resolved]
  - Drug dose omission [Unknown]
  - Nausea [Recovered/Resolved]
  - Hepatic enzyme increased [Recovered/Resolved]
  - Abdominal discomfort [Recovering/Resolving]
  - Anxiety [Recovered/Resolved]
  - Headache [Recovered/Resolved]
  - Road traffic accident [Unknown]

NARRATIVE: CASE EVENT DATE: 2014
